FAERS Safety Report 25372850 (Version 2)
Quarter: 2025Q4

REPORT INFORMATION
  Report Type: Spontaneous
  Country: JP (occurrence: JP)
  Receive Date: 20250529
  Receipt Date: 20251110
  Transmission Date: 20260118
  Serious: Yes (Other)
  Sender: BIOCON
  Company Number: JP-BIOCON BIOLOGICS LIMITED-BBL2025002853

PATIENT

DRUGS (1)
  1. ADALIMUMAB [Suspect]
     Active Substance: ADALIMUMAB
     Indication: Axial spondyloarthritis
     Dosage: UNK (INJECTION)
     Route: 065

REACTIONS (1)
  - Cutaneous lupus erythematosus [Recovering/Resolving]
